FAERS Safety Report 8418166-5 (Version None)
Quarter: 2012Q2

REPORT INFORMATION
  Report Type: 
  Country: None (occurrence: None)
  Receive Date: 20120607
  Receipt Date: 20120601
  Transmission Date: 20120825
  Serious: No
  Sender: FDA-Public Use
  Company Number: US-PFIZER INC-2012133296

PATIENT
  Sex: Female

DRUGS (2)
  1. PRISTIQ [Suspect]
     Indication: DEPRESSION
     Dosage: 50 MG, 2X/DAY
  2. PRISTIQ [Suspect]
     Indication: ANXIETY
     Dosage: 100 MG, UNK

REACTIONS (2)
  - ANXIETY [None]
  - DEPRESSION [None]
